FAERS Safety Report 14492340 (Version 1)
Quarter: 2018Q1

REPORT INFORMATION
  Report Type: Spontaneous
  Country: US (occurrence: US)
  Receive Date: 20180205
  Receipt Date: 20180205
  Transmission Date: 20180509
  Serious: No
  Sender: FDA-Public Use
  Company Number: None

PATIENT
  Sex: Female
  Weight: 49.9 kg

DRUGS (4)
  1. FORTEO [Suspect]
     Active Substance: TERIPARATIDE
     Indication: PAIN
     Route: 048
     Dates: start: 201712
  2. FORTEO [Suspect]
     Active Substance: TERIPARATIDE
     Indication: SPINAL OSTEOARTHRITIS
     Route: 048
     Dates: start: 201712
  3. FORTEO [Suspect]
     Active Substance: TERIPARATIDE
     Indication: ARTHROPATHY
     Route: 048
     Dates: start: 201712
  4. FORTEO [Suspect]
     Active Substance: TERIPARATIDE
     Indication: INTERVERTEBRAL DISC DEGENERATION
     Route: 048
     Dates: start: 201712

REACTIONS (1)
  - Pneumonia [None]
